FAERS Safety Report 5120186-3 (Version None)
Quarter: 2006Q4

REPORT INFORMATION
  Report Type: 
  Country: None (occurrence: None)
  Receive Date: 20061002
  Receipt Date: 20061002
  Transmission Date: 20070319
  Serious: Yes (Congenital Anomaly)
  Sender: FDA-Public Use
  Company Number: None

PATIENT
  Age: 27 Year
  Sex: Female

DRUGS (2)
  1. METROGEL [Suspect]
     Indication: AMOEBIASIS
     Dates: start: 19980101, end: 19981231
  2. METROGEL [Suspect]
     Indication: INFECTION PROTOZOAL
     Dates: start: 19980101, end: 19981231

REACTIONS (2)
  - CONGENITAL ANOMALY [None]
  - DRUG EXPOSURE DURING PREGNANCY [None]
